FAERS Safety Report 17484777 (Version 4)
Quarter: 2020Q2

REPORT INFORMATION
  Report Type: Spontaneous
  Country: US (occurrence: US)
  Receive Date: 20200302
  Receipt Date: 20200604
  Transmission Date: 20200713
  Serious: Yes (Death, Other)
  Sender: FDA-Public Use
  Company Number: US-EPIC PHARMA LLC-2020EPC00087

PATIENT
  Sex: Male
  Weight: 146.03 kg

DRUGS (6)
  1. OXYCODONE [Suspect]
     Active Substance: OXYCODONE
     Dosage: UNK
  2. UNSPECIFIED PRESCRIPTION MEDICATION [Suspect]
     Active Substance: UNSPECIFIED INGREDIENT
     Indication: WISDOM TEETH REMOVAL
     Dosage: UNK
  3. BENZOYLECGONINE [Suspect]
     Active Substance: BENZOYLECGONINE
     Dosage: UNK
  4. VICODIN [Suspect]
     Active Substance: ACETAMINOPHEN\HYDROCODONE BITARTRATE
     Indication: LIGAMENT SPRAIN
     Dosage: UNK
  5. ALCOHOL. [Suspect]
     Active Substance: ALCOHOL
     Dosage: UNK
  6. OXYMORPHONE [Suspect]
     Active Substance: OXYMORPHONE
     Dosage: UNK

REACTIONS (9)
  - Personality change [Unknown]
  - Hypertensive cardiomegaly [Fatal]
  - Hepatomegaly [Not Recovered/Not Resolved]
  - Abnormal behaviour [Unknown]
  - Left ventricular hypertrophy [Not Recovered/Not Resolved]
  - Arteriosclerosis [Not Recovered/Not Resolved]
  - Aggression [Unknown]
  - Toxicity to various agents [Fatal]
  - Myocardial fibrosis [Not Recovered/Not Resolved]
